FAERS Safety Report 15885555 (Version 1)
Quarter: 2019Q1

REPORT INFORMATION
  Report Type: Spontaneous
  Country: FR (occurrence: FR)
  Receive Date: 20190129
  Receipt Date: 20190129
  Transmission Date: 20190417
  Serious: Yes (Other)
  Sender: FDA-Public Use
  Company Number: FR-TEVA-2019-FR-1004533

PATIENT
  Age: 27 Year
  Sex: Female
  Weight: 83 kg

DRUGS (1)
  1. TRAMADOL BASE [Suspect]
     Active Substance: TRAMADOL
     Dosage: 2000 MILLIGRAM DAILY;
     Route: 048
     Dates: start: 2003

REACTIONS (1)
  - Dependence [Recovering/Resolving]

NARRATIVE: CASE EVENT DATE: 2003
